FAERS Safety Report 9251662 (Version 1)
Quarter: 2013Q2

REPORT INFORMATION
  Report Type: Spontaneous
  Country: US (occurrence: US)
  Receive Date: 20130424
  Receipt Date: 20130424
  Transmission Date: 20140414
  Serious: No
  Sender: FDA-Public Use
  Company Number: US-PFIZER INC-2013126647

PATIENT
  Sex: 0

DRUGS (2)
  1. LYRICA [Suspect]
     Indication: DEPRESSION
     Dosage: UNK
  2. LYRICA [Suspect]
     Indication: ANXIETY DISORDER

REACTIONS (2)
  - Off label use [Unknown]
  - Therapeutic response unexpected [Unknown]
